FAERS Safety Report 7870954-X (Version None)
Quarter: 2011Q4

REPORT INFORMATION
  Report Type: 
  Country: None (occurrence: None)
  Receive Date: 20111029
  Receipt Date: 20110221
  Transmission Date: 20120403
  Serious: No
  Sender: FDA-Public Use
  Company Number: US-AMGEN-USASP2011010388

PATIENT
  Age: 43 Year
  Sex: Female

DRUGS (1)
  1. ENBREL [Suspect]
     Indication: RHEUMATOID ARTHRITIS
     Dosage: 50 MG, QWK
     Dates: start: 20090317

REACTIONS (7)
  - PRODUCTIVE COUGH [None]
  - MALAISE [None]
  - FATIGUE [None]
  - BLOOD PRESSURE INCREASED [None]
  - UPPER RESPIRATORY TRACT INFECTION [None]
  - HEART RATE INCREASED [None]
  - SPUTUM DISCOLOURED [None]
